FAERS Safety Report 6930774-7 (Version None)
Quarter: 2010Q3

REPORT INFORMATION
  Report Type: 
  Country: None (occurrence: None)
  Receive Date: 20100817
  Receipt Date: 20100817
  Transmission Date: 20110219
  Serious: Yes (Other)
  Sender: FDA-Public Use
  Company Number: None

PATIENT
  Age: 6 Year
  Weight: 16.3295 kg

DRUGS (1)
  1. ADDERALL XR 10 [Suspect]
     Indication: ATTENTION DEFICIT/HYPERACTIVITY DISORDER
     Dosage: 15 MG
     Dates: start: 20100606, end: 20100811

REACTIONS (6)
  - COUGH [None]
  - DRUG INEFFECTIVE [None]
  - EXCESSIVE EYE BLINKING [None]
  - MULTIPLE ALLERGIES [None]
  - OBSESSIVE-COMPULSIVE DISORDER [None]
  - TIC [None]
